FAERS Safety Report 17166956 (Version 2)
Quarter: 2019Q4

REPORT INFORMATION
  Report Type: Report from Study
  Country: CO (occurrence: CO)
  Receive Date: 20191217
  Receipt Date: 20191230
  Transmission Date: 20200122
  Serious: Yes (Other)
  Sender: FDA-Public Use
  Company Number: CO-INCYTE CORPORATION-2019IN000875

PATIENT

DRUGS (6)
  1. ACETYLSALICYLIC ACID [Concomitant]
     Active Substance: ASPIRIN
     Indication: ANTICOAGULANT THERAPY
     Dosage: UNK, QD
     Route: 048
  2. JAKAVI [Suspect]
     Active Substance: RUXOLITINIB
     Indication: POLYCYTHAEMIA VERA
     Dosage: 20 MG, QD
     Route: 048
  3. JAKAVI [Suspect]
     Active Substance: RUXOLITINIB
     Dosage: 5 MG, QD
     Route: 048
  4. LOPRESOR [Suspect]
     Active Substance: METOPROLOL
     Indication: HYPERTENSION
     Dosage: 20 MG, QD
     Route: 048
  5. AMLODIPINE BESILATE [Suspect]
     Active Substance: AMLODIPINE BESYLATE
     Indication: HYPERTENSION
     Dosage: 5 MG, Q12H
     Route: 048
  6. JAKAVI [Suspect]
     Active Substance: RUXOLITINIB
     Dosage: 5 MG, Q12H
     Route: 048
     Dates: start: 2017

REACTIONS (6)
  - Renal failure [Unknown]
  - Anaemia [Recovered/Resolved]
  - Inappropriate schedule of product administration [Unknown]
  - Muscle spasms [Unknown]
  - Pruritus [Recovering/Resolving]
  - Concomitant disease aggravated [Unknown]
